FAERS Safety Report 8420978-9 (Version None)
Quarter: 2012Q2

REPORT INFORMATION
  Report Type: 
  Country: None (occurrence: None)
  Receive Date: 20120531
  Receipt Date: 20120510
  Transmission Date: 20120825
  Serious: Yes (Hospitalization)
  Sender: FDA-Public Use
  Company Number: AG-2012-0292

PATIENT
  Age: 76 Year
  Sex: Male

DRUGS (11)
  1. CHLORPHENIRAMINE (CHLORPHENIRAMINE)(UNKNOWN) [Concomitant]
  2. RANITIDINE [Concomitant]
  3. ALLOPURINOL [Concomitant]
  4. BENDAMUSTINE (BENDAMUSTINE)(UNKNOWN) [Concomitant]
  5. LEUKERAN [Suspect]
     Indication: CHRONIC LYMPHOCYTIC LEUKAEMIA
     Dosage: 18 MILLIGRAM (18 MILLIGRAM, 1 IN 1 DAYS) , ORAL
     Route: 048
     Dates: start: 20120323
  6. ACETAMINOPHEN [Concomitant]
  7. METOCLOPRAMIDE [Concomitant]
  8. OFATUMUMAB (OFATUMUMAB)(UNKNOWN) [Suspect]
     Indication: CHRONIC LYMPHOCYTIC LEUKAEMIA
     Dosage: (1000 MILLIGRAM) INTRAVENOUS (NOT OTHERWISE SPECIFIED)
     Route: 042
     Dates: start: 20120322
  9. ACICLOVIR (ACICLOVIR)(UNKNOWN) [Concomitant]
  10. PREDNISOLONE [Suspect]
     Dosage: 20 MILLIGRAM (20 MILLIGRAM,L 1IN 1 DAYS) , ORAL
     Route: 048
     Dates: start: 20120423, end: 20120425
  11. G-CSF (G-CSF)(UNKNOWN) [Concomitant]

REACTIONS (3)
  - INFECTION [None]
  - MALAISE [None]
  - PYREXIA [None]
